FAERS Safety Report 22121174 (Version 3)
Quarter: 2023Q2

REPORT INFORMATION
  Report Type: Other
  Country: EG (occurrence: EG)
  Receive Date: 20230321
  Receipt Date: 20230410
  Transmission Date: 20230721
  Serious: No
  Sender: FDA-Public Use
  Company Number: EG-002147023-NVSC2023EG059405

PATIENT
  Sex: Male

DRUGS (3)
  1. ENTRESTO [Suspect]
     Active Substance: SACUBITRIL\VALSARTAN
     Indication: Cardiac failure
     Dosage: 100 MG, BID
     Route: 048
     Dates: start: 20220601, end: 20220630
  2. PLAVIX [Concomitant]
     Active Substance: CLOPIDOGREL BISULFATE
     Indication: Thrombosis
     Dosage: 1 DOSAGE FORM (AFTER BREAKFAST)
     Route: 048
     Dates: start: 2013
  3. CRESTOLIP [Concomitant]
     Indication: Cardiac disorder
     Dosage: 1 DOSAGE FORM (AFTER DINNER)
     Route: 048
     Dates: start: 202212

REACTIONS (1)
  - No adverse event [Unknown]
